FAERS Safety Report 14742389 (Version 1)
Quarter: 2018Q2

REPORT INFORMATION
  Report Type: Spontaneous
  Country: RU (occurrence: RU)
  Receive Date: 20180410
  Receipt Date: 20180410
  Transmission Date: 20180711
  Serious: Yes (Hospitalization, Other)
  Sender: FDA-Public Use
  Company Number: RU-ASTRAZENECA-2017SF11897

PATIENT
  Age: 59 Year
  Sex: Female
  Weight: 98 kg

DRUGS (8)
  1. AMLODIPINE [Concomitant]
     Active Substance: AMLODIPINE BESYLATE
  2. CONCOR [Concomitant]
     Active Substance: BISOPROLOL FUMARATE
  3. LIPRIMAR [Concomitant]
     Active Substance: ATORVASTATIN CALCIUM
  4. VAMLOSET [Concomitant]
  5. ALLOPURINOL. [Concomitant]
     Active Substance: ALLOPURINOL
  6. CARDIOMAGNYL [Concomitant]
     Active Substance: ASPIRIN\MAGNESIUM HYDROXIDE
  7. NOLPAZA [Concomitant]
     Active Substance: PANTOPRAZOLE SODIUM
  8. BRILINTA [Suspect]
     Active Substance: TICAGRELOR
     Indication: MYOCARDIAL INFARCTION
     Route: 048
     Dates: start: 2017

REACTIONS (7)
  - Pollakiuria [Recovered/Resolved]
  - Bladder pain [Recovered/Resolved]
  - Gingival bleeding [Recovered/Resolved]
  - Nasopharyngitis [Not Recovered/Not Resolved]
  - Blood urea increased [Not Recovered/Not Resolved]
  - Contusion [Recovered/Resolved]
  - Liver function test abnormal [Not Recovered/Not Resolved]

NARRATIVE: CASE EVENT DATE: 201710
